FAERS Safety Report 11913029 (Version 3)
Quarter: 2016Q2

REPORT INFORMATION
  Report Type: Report from Study
  Country: CA (occurrence: CA)
  Receive Date: 20160113
  Receipt Date: 20160523
  Transmission Date: 20160815
  Serious: Yes (Death, Hospitalization)
  Sender: FDA-Public Use
  Company Number: PHHY2014CA164189

PATIENT
  Age: 71 Year
  Sex: Male

DRUGS (1)
  1. SANDOSTATIN LAR DEPOT [Suspect]
     Active Substance: OCTREOTIDE ACETATE
     Indication: ACROMEGALY
     Dosage: 20 MG, QMO (EVERY 4 WEEKS)
     Route: 030
     Dates: start: 20140919

REACTIONS (13)
  - Aggression [Unknown]
  - Heart rate decreased [Unknown]
  - Blood pressure diastolic increased [Unknown]
  - Blood pressure diastolic decreased [Unknown]
  - Death [Fatal]
  - Muscle spasms [Unknown]
  - Malaise [Unknown]
  - Confusional state [Unknown]
  - Gait disturbance [Unknown]
  - Rectal haemorrhage [Unknown]
  - Asthenia [Not Recovered/Not Resolved]
  - Muscular weakness [Unknown]
  - Blood pressure systolic increased [Unknown]

NARRATIVE: CASE EVENT DATE: 20141211
